FAERS Safety Report 16951644 (Version 2)
Quarter: 2020Q2

REPORT INFORMATION
  Report Type: Spontaneous
  Country: US (occurrence: US)
  Receive Date: 20191023
  Receipt Date: 20200507
  Transmission Date: 20200713
  Serious: Yes (Other)
  Sender: FDA-Public Use
  Company Number: US-CLOVIS ONCOLOGY-CLO-2019-002131

PATIENT
  Age: 58 Year
  Sex: Female

DRUGS (3)
  1. RUBRACA [Suspect]
     Active Substance: RUCAPARIB CAMSYLATE
     Dosage: 600 MG, BID
     Dates: start: 201804
  2. RUBRACA [Suspect]
     Active Substance: RUCAPARIB CAMSYLATE
     Indication: NEUROENDOCRINE TUMOUR
     Dosage: 600 MG, BID
     Dates: start: 2018
  3. RUBRACA [Suspect]
     Active Substance: RUCAPARIB CAMSYLATE
     Indication: NEUROENDOCRINE CARCINOMA
     Dosage: 600 MG, BID
     Dates: start: 201903

REACTIONS (8)
  - Malaise [Unknown]
  - Pain in extremity [Unknown]
  - Swelling [Unknown]
  - Product use in unapproved indication [Unknown]
  - Myalgia [Recovered/Resolved]
  - Asthenia [Recovered/Resolved]
  - Gait disturbance [Recovered/Resolved]
  - Cataract [Unknown]

NARRATIVE: CASE EVENT DATE: 201810
